FAERS Safety Report 22029561 (Version 2)
Quarter: 2023Q2

REPORT INFORMATION
  Report Type: Spontaneous
  Country: US (occurrence: US)
  Receive Date: 20230223
  Receipt Date: 20230411
  Transmission Date: 20230721
  Serious: No
  Sender: FDA-Public Use
  Company Number: US-PFIZER INC-202300076231

PATIENT
  Age: 40 Year
  Sex: Male

DRUGS (1)
  1. DEPO-TESTOSTERONE [Suspect]
     Active Substance: TESTOSTERONE CYPIONATE
     Indication: Blood disorder
     Dosage: EVERY 14 DAYS
     Route: 030

REACTIONS (3)
  - Poor quality product administered [Unknown]
  - Product deposit [Unknown]
  - Off label use [Unknown]
